FAERS Safety Report 21058926 (Version 2)
Quarter: 2022Q3

REPORT INFORMATION
  Report Type: Spontaneous
  Country: US (occurrence: None)
  Receive Date: 20220708
  Receipt Date: 20220826
  Transmission Date: 20221027
  Serious: Yes (Other)
  Sender: FDA-Public Use
  Company Number: 2022A247045

PATIENT

DRUGS (1)
  1. TEZSPIRE [Suspect]
     Active Substance: TEZEPELUMAB-EKKO
     Route: 065

REACTIONS (12)
  - Eye swelling [Unknown]
  - Urticaria [Unknown]
  - Hypopnoea [Unknown]
  - Peak expiratory flow rate decreased [Unknown]
  - Rhinorrhoea [Unknown]
  - Eye pruritus [Unknown]
  - Myalgia [Unknown]
  - Cough [Unknown]
  - Ocular hyperaemia [Unknown]
  - Arthralgia [Unknown]
  - Dizziness [Unknown]
  - Back pain [Unknown]
